FAERS Safety Report 9774995 (Version 3)
Quarter: 2014Q2

REPORT INFORMATION
  Report Type: Spontaneous
  Country: US (occurrence: US)
  Receive Date: 20131220
  Receipt Date: 20140422
  Transmission Date: 20141212
  Serious: Yes (Hospitalization)
  Sender: FDA-Public Use
  Company Number: US-BAYER-2013-154019

PATIENT
  Age: 31 Year
  Sex: Female
  Weight: 81.63 kg

DRUGS (1)
  1. MIRENA [Suspect]
     Dosage: 20 MCG/24HR, CONT
     Route: 015
     Dates: start: 20040217, end: 20091116

REACTIONS (5)
  - Uterine perforation [None]
  - Medical device discomfort [None]
  - Medical device pain [None]
  - Injury [None]
  - Device misuse [None]
